FAERS Safety Report 7332412-0 (Version None)
Quarter: 2011Q1

REPORT INFORMATION
  Report Type: 
  Country: None (occurrence: None)
  Receive Date: 20110304
  Receipt Date: 20110228
  Transmission Date: 20110831
  Serious: Yes (Other)
  Sender: FDA-Public Use
  Company Number: PT-ROCHE-762699

PATIENT
  Sex: Female

DRUGS (3)
  1. HERCEPTIN [Suspect]
     Dosage: FOR INDICATION: BREAST CANCER IN ADJUVANT.
     Route: 065
  2. HERCEPTIN [Suspect]
     Dosage: FOR INDICATION: METASTATIC BREAST CANCER.
     Route: 065
  3. PACLITAXEL [Concomitant]

REACTIONS (3)
  - DYSPNOEA [None]
  - METASTASES TO LUNG [None]
  - NEOPLASM MALIGNANT [None]
